FAERS Safety Report 10047541 (Version 3)
Quarter: 2014Q2

REPORT INFORMATION
  Report Type: Spontaneous
  Country: US (occurrence: US)
  Receive Date: 20140331
  Receipt Date: 20140428
  Transmission Date: 20141212
  Serious: No
  Sender: FDA-Public Use
  Company Number: US-UCBSA-039676

PATIENT
  Age: 54 Year
  Sex: Female
  Weight: 81.2 kg

DRUGS (7)
  1. KEPPRA [Suspect]
     Indication: CONVULSION
     Dates: start: 200010
  2. DILANTIN [Concomitant]
     Indication: PETIT MAL EPILEPSY
     Dosage: 160MG IN THE MORNING AND 200MG IN THE NIGHT.
     Route: 048
     Dates: start: 1964
  3. DILANTIN [Concomitant]
     Indication: GENERALISED TONIC-CLONIC SEIZURE
     Dosage: 160MG IN THE MORNING AND 200MG IN THE NIGHT.
     Route: 048
     Dates: start: 1964
  4. DILANTIN [Concomitant]
     Indication: PETIT MAL EPILEPSY
     Dosage: 200MG IN THE MORNING AND 100MG IN THE NIGHT
  5. DILANTIN [Concomitant]
     Indication: GENERALISED TONIC-CLONIC SEIZURE
     Dosage: 200MG IN THE MORNING AND 100MG IN THE NIGHT
  6. PHENOBARBITAL [Concomitant]
     Indication: CONVULSION
     Dosage: 97MG DAILY
  7. CIPROFLOXACIN HCL [Concomitant]
     Indication: CYSTITIS

REACTIONS (1)
  - Convulsion [Recovered/Resolved]
